FAERS Safety Report 19767847 (Version 1)
Quarter: 2021Q3

REPORT INFORMATION
  Report Type: Spontaneous
  Country: US (occurrence: US)
  Receive Date: 20210830
  Receipt Date: 20210830
  Transmission Date: 20211014
  Serious: No
  Sender: FDA-Public Use
  Company Number: US-KYOWAKIRIN-2021BKK014470

PATIENT

DRUGS (2)
  1. CRYSVITA [Suspect]
     Active Substance: BUROSUMAB-TWZA
     Indication: HEREDITARY HYPOPHOSPHATAEMIC RICKETS
     Dosage: 30 MG (COMBINED WITH CRYSVITA STRENGTH 20 MG/ML TO ACHIEVE DOSE OF 50 MG), EVERY 14 DAYS
     Route: 058
     Dates: start: 20190122
  2. CRYSVITA [Suspect]
     Active Substance: BUROSUMAB-TWZA
     Indication: HEREDITARY HYPOPHOSPHATAEMIC RICKETS
     Dosage: 20 MG (COMBINED WITH CRYSVITA STRENGTH 30 MG/ML TO ACHIEVE DOSE OF 50 MG), EVERY 14 DAYS
     Route: 058
     Dates: start: 20190122

REACTIONS (1)
  - SARS-CoV-2 test positive [Unknown]

NARRATIVE: CASE EVENT DATE: 2021
